FAERS Safety Report 12256258 (Version 1)
Quarter: 2016Q2

REPORT INFORMATION
  Report Type: Spontaneous
  Country: US (occurrence: None)
  Receive Date: 20160411
  Receipt Date: 20160411
  Transmission Date: 20160815
  Serious: No
  Sender: FDA-Public Use
  Company Number: None

PATIENT
  Age: 50 Year
  Sex: Female
  Weight: 75.75 kg

DRUGS (8)
  1. ALEVE [Concomitant]
     Active Substance: NAPROXEN SODIUM
  2. VITAMIN D [Concomitant]
     Active Substance: CHOLECALCIFEROL
  3. IBUPROFEN. [Concomitant]
     Active Substance: IBUPROFEN
  4. ZITHROMAX [Suspect]
     Active Substance: AZITHROMYCIN DIHYDRATE
     Indication: SINUSITIS
     Route: 048
     Dates: start: 20160301, end: 20160331
  5. FLAXSEED [Concomitant]
     Active Substance: FLAX SEED
  6. MULTIVITAMIN [Concomitant]
     Active Substance: VITAMINS
  7. BIOIDENTICAL ESTROGEN-PROGESTERONE [Concomitant]
  8. PROBIOTIC [Concomitant]
     Active Substance: PROBIOTICS NOS

REACTIONS (2)
  - Ageusia [None]
  - Anosmia [None]

NARRATIVE: CASE EVENT DATE: 20160401
